FAERS Safety Report 16502768 (Version 1)
Quarter: 2019Q3

REPORT INFORMATION
  Report Type: Spontaneous
  Country: US (occurrence: US)
  Receive Date: 20190701
  Receipt Date: 20190701
  Transmission Date: 20191004
  Serious: No
  Sender: FDA-Public Use
  Company Number: US-BRISTOL-MYERS SQUIBB COMPANY-BMS-2019-062963

PATIENT
  Sex: Female
  Weight: 50.79 kg

DRUGS (1)
  1. ELIQUIS [Suspect]
     Active Substance: APIXABAN
     Indication: RENAL DISORDER
     Dosage: 1 DOSAGE FORM, BID
     Route: 065
     Dates: start: 20190624

REACTIONS (2)
  - Circumstance or information capable of leading to medication error [Unknown]
  - Intentional product use issue [Unknown]
